FAERS Safety Report 4769035-3 (Version None)
Quarter: 2005Q3

REPORT INFORMATION
  Report Type: 
  Country: None (occurrence: None)
  Receive Date: 20050915
  Receipt Date: 20050905
  Transmission Date: 20060218
  Serious: Yes (Hospitalization)
  Sender: FDA-Public Use
  Company Number: DE-JNJFOC-20050803688

PATIENT
  Sex: Female

DRUGS (12)
  1. REMICADE [Suspect]
     Route: 042
  2. REMICADE [Suspect]
     Route: 042
  3. REMICADE [Suspect]
     Route: 042
  4. REMICADE [Suspect]
     Route: 042
  5. REMICADE [Suspect]
     Route: 042
  6. REMICADE [Suspect]
     Route: 042
  7. REMICADE [Suspect]
     Indication: RHEUMATOID ARTHRITIS
     Route: 042
  8. BELOC-ZOK MITE [Concomitant]
  9. PREDNISOLONE [Concomitant]
  10. ENALAPRIL [Concomitant]
  11. NOVONORM [Concomitant]
  12. NOVONORM [Concomitant]

REACTIONS (3)
  - CARDIAC FAILURE [None]
  - DIABETES MELLITUS NON-INSULIN-DEPENDENT [None]
  - PNEUMONIA [None]
